FAERS Safety Report 23643129 (Version 1)
Quarter: 2024Q1

REPORT INFORMATION
  Report Type: Spontaneous
  Country: US (occurrence: None)
  Receive Date: 20240315
  Receipt Date: 20240315
  Transmission Date: 20240410
  Serious: Yes (Disabling)
  Sender: FDA-Public Use
  Company Number: None

PATIENT
  Age: 68 Year
  Sex: Female
  Weight: 52.62 kg

DRUGS (6)
  1. DOTAREM [Suspect]
     Active Substance: GADOTERATE MEGLUMINE
     Route: 042
     Dates: start: 20231222, end: 20231222
  2. ESTRADIOL [Concomitant]
  3. TOPROL XL [Concomitant]
     Active Substance: METOPROLOL SUCCINATE
  4. liquid vitamin d3 [Concomitant]
  5. Liquid Vtamine B complex [Concomitant]
  6. magnesium chelate supplement [Concomitant]

REACTIONS (12)
  - Skin burning sensation [None]
  - Neuralgia [None]
  - Contrast media reaction [None]
  - Fatigue [None]
  - Middle insomnia [None]
  - Hypertension [None]
  - Weight decreased [None]
  - Alopecia [None]
  - Anxiety [None]
  - Depression [None]
  - General physical health deterioration [None]
  - Fat tissue increased [None]

NARRATIVE: CASE EVENT DATE: 20231222
